FAERS Safety Report 8541309-X (Version None)
Quarter: 2012Q3

REPORT INFORMATION
  Report Type: 
  Country: None (occurrence: None)
  Receive Date: 20120726
  Receipt Date: 20120716
  Transmission Date: 20120928
  Serious: Yes (Hospitalization, Other)
  Sender: FDA-Public Use
  Company Number: DK-PFIZER INC-2012171695

PATIENT
  Age: 37 Year
  Sex: Female

DRUGS (2)
  1. ALPRAZOLAM [Suspect]
     Indication: ANXIETY
  2. ALPRAZOLAM [Suspect]
     Indication: RESTLESSNESS
     Dosage: 0.25 MG, 2X/DAY
     Route: 048
     Dates: start: 20030312

REACTIONS (10)
  - IRRITABILITY [None]
  - IMPAIRED WORK ABILITY [None]
  - SCHIZOTYPAL PERSONALITY DISORDER [None]
  - ANXIETY [None]
  - ALCOHOL ABUSE [None]
  - ABDOMINAL PAIN UPPER [None]
  - DRUG INEFFECTIVE [None]
  - WITHDRAWAL SYNDROME [None]
  - DRUG ABUSE [None]
  - MUSCLE SPASMS [None]
